FAERS Safety Report 19056571 (Version 1)
Quarter: 2021Q1

REPORT INFORMATION
  Report Type: Report from Study
  Country: CA (occurrence: CA)
  Receive Date: 20210325
  Receipt Date: 20210325
  Transmission Date: 20210420
  Serious: Yes (Hospitalization, Other)
  Sender: FDA-Public Use
  Company Number: CA-UCBSA-2021012917

PATIENT
  Age: 59 Year
  Sex: Male

DRUGS (2)
  1. LACOSAMIDE EP [Suspect]
     Active Substance: LACOSAMIDE
     Indication: EPILEPSY
     Dosage: 150 MILLIGRAM, ONCE DAILY (QD)
     Route: 048
  2. VALPROIC ACID. [Concomitant]
     Active Substance: VALPROIC ACID
     Indication: PRODUCT USED FOR UNKNOWN INDICATION
     Dosage: UNK

REACTIONS (2)
  - Product use issue [Unknown]
  - Cerebrovascular accident [Recovered/Resolved]

NARRATIVE: CASE EVENT DATE: 202012
